FAERS Safety Report 12655536 (Version 1)
Quarter: 2016Q3

REPORT INFORMATION
  Report Type: Spontaneous
  Country: FR (occurrence: FR)
  Receive Date: 20160816
  Receipt Date: 20160816
  Transmission Date: 20161109
  Serious: Yes (Hospitalization, Other)
  Sender: FDA-Public Use
  Company Number: FR-TEVA-683462ISR

PATIENT
  Age: 62 Year
  Sex: Male
  Weight: 135 kg

DRUGS (12)
  1. ICAZ LP 5 MG [Concomitant]
     Dosage: 1 DOSAGE FORMS DAILY;
  2. NEBIVOLOL HYDROCHLORIDE 5 MG [Concomitant]
     Dosage: .25 DOSAGE FORMS DAILY;
  3. AMOXICILLIN CLAVULANIC ACID [Suspect]
     Active Substance: AMOXICILLIN\CLAVULANIC ACID
     Indication: CHRONIC OBSTRUCTIVE PULMONARY DISEASE
     Dosage: 1 GRAM DAILY;
     Route: 048
     Dates: start: 20160715, end: 20160715
  4. NEURONTIN 600 MG [Concomitant]
     Dosage: 6 DOSAGE FORMS DAILY;
  5. CALTRATE VITAMIN D3 600 MG/400 IU [Concomitant]
     Dosage: 2 DOSAGE FORMS DAILY;
  6. STILNOX 10 MG [Concomitant]
     Dosage: 1 DOSAGE FORMS DAILY;
  7. FLUTICASONE PROPIONATE 500 MCG/DOSE SALMETEROL 50 MCG/DOSE [Concomitant]
     Dosage: 2 DOSAGE FORMS DAILY;
  8. DUOPLAVIN 75 MG/75 MG [Concomitant]
     Dosage: 1 DOSAGE FORMS DAILY;
  9. ROSUVASTATINE 5 MG [Concomitant]
     Dosage: 1 DOSAGE FORMS DAILY;
  10. COTAREG 160 MG/25 MG [Concomitant]
     Dosage: 1 DOSAGE FORMS DAILY;
  11. ADANCOR 10 MG [Concomitant]
     Dosage: 1 DOSAGE FORMS DAILY;
  12. EFFEXOR LP 75 MG [Concomitant]
     Dosage: 1 DOSAGE FORMS DAILY;

REACTIONS (1)
  - Angioedema [Recovered/Resolved]

NARRATIVE: CASE EVENT DATE: 20160715
